FAERS Safety Report 13398497 (Version 1)
Quarter: 2017Q2

REPORT INFORMATION
  Report Type: Spontaneous
  Country: US (occurrence: US)
  Receive Date: 20170403
  Receipt Date: 20170403
  Transmission Date: 20170830
  Serious: Yes (Hospitalization)
  Sender: FDA-Public Use
  Company Number: US-VIFOR (INTERNATIONAL) INC.-VIT-2017-03446

PATIENT
  Sex: Male

DRUGS (18)
  1. TRAMADOL. [Concomitant]
     Active Substance: TRAMADOL
  2. FENTANYL. [Concomitant]
     Active Substance: FENTANYL
  3. GABAPENTIN. [Concomitant]
     Active Substance: GABAPENTIN
  4. LEVETIRACETAM. [Concomitant]
     Active Substance: LEVETIRACETAM
  5. NOVOLOG [Concomitant]
     Active Substance: INSULIN ASPART
  6. LANTUS [Concomitant]
     Active Substance: INSULIN GLARGINE
  7. ERGOCALCIFEROL. [Concomitant]
     Active Substance: ERGOCALCIFEROL
  8. METOPROLOL. [Concomitant]
     Active Substance: METOPROLOL
  9. VELTASSA [Suspect]
     Active Substance: PATIROMER
     Indication: HYPERKALAEMIA
     Route: 048
  10. AMIODARONE [Concomitant]
     Active Substance: AMIODARONE
  11. WARFARIN [Concomitant]
     Active Substance: WARFARIN
  12. ACETYLCYSTEINE. [Concomitant]
     Active Substance: ACETYLCYSTEINE
  13. CEFUROXIME. [Concomitant]
     Active Substance: CEFUROXIME
  14. AMLODIPINE [Concomitant]
     Active Substance: AMLODIPINE BESYLATE
  15. CALCIUM ACETATE. [Concomitant]
     Active Substance: CALCIUM ACETATE
  16. IPRATROPIUM BROMIDE/ALBUTEROL [Concomitant]
  17. FAMOTIDINE. [Concomitant]
     Active Substance: FAMOTIDINE
  18. AMMONIUM LACTATE. [Concomitant]
     Active Substance: AMMONIUM LACTATE

REACTIONS (1)
  - Hospitalisation [Not Recovered/Not Resolved]

NARRATIVE: CASE EVENT DATE: 2017
